FAERS Safety Report 23921543 (Version 2)
Quarter: 2024Q2

REPORT INFORMATION
  Report Type: Spontaneous
  Country: BE (occurrence: BE)
  Receive Date: 20240530
  Receipt Date: 20240614
  Transmission Date: 20240716
  Serious: Yes (Other)
  Sender: FDA-Public Use
  Company Number: BE-TEVA-VS-3202649

PATIENT
  Age: 37 Year
  Sex: Female

DRUGS (3)
  1. CISPLATIN [Suspect]
     Active Substance: CISPLATIN
     Indication: Pleural neoplasm
     Route: 065
  2. IFOSFAMIDE [Suspect]
     Active Substance: IFOSFAMIDE
     Indication: Pleural neoplasm
     Route: 065
  3. ETOPOSIDE [Concomitant]
     Active Substance: ETOPOSIDE
     Indication: Pleural neoplasm
     Route: 065

REACTIONS (7)
  - Deafness [Recovering/Resolving]
  - Thrombocytopenia [Recovering/Resolving]
  - Anaemia [Recovering/Resolving]
  - Peripheral sensory neuropathy [Recovering/Resolving]
  - Tinnitus [Recovering/Resolving]
  - Febrile neutropenia [Recovering/Resolving]
  - Drug intolerance [Unknown]
